FAERS Safety Report 23985947 (Version 1)
Quarter: 2024Q2

REPORT INFORMATION
  Report Type: Spontaneous
  Country: US (occurrence: US)
  Receive Date: 20240618
  Receipt Date: 20240618
  Transmission Date: 20240715
  Serious: Yes (Other)
  Sender: FDA-Public Use
  Company Number: US-ELI_LILLY_AND_COMPANY-US202406001835

PATIENT
  Age: 74 Year
  Sex: Female

DRUGS (1)
  1. VALGANCICLOVIR [Suspect]
     Active Substance: VALGANCICLOVIR
     Indication: Transplant
     Dosage: UNK UNK, UNKNOWN
     Route: 065

REACTIONS (2)
  - Cholelithiasis [Unknown]
  - Gallbladder disorder [Unknown]
